FAERS Safety Report 8285923 (Version 2)
Quarter: 2012Q4

REPORT INFORMATION
  Report Type: 
  Country: US (occurrence: US)
  Receive Date: 20111213
  Receipt Date: 20121113
  Transmission Date: 20130627
  Serious: Yes (Other)
  Sender: FDA-Public Use
  Company Number: US-AMGEN-USASP2011034074

PATIENT
  Age: 67 Year
  Sex: Female
  Weight: 85.71 kg

DRUGS (1)
  1. ARANESP [Suspect]
     Indication: RENAL FAILURE CHRONIC
     Dosage: 60 mug, q2wk
     Dates: start: 2007

REACTIONS (1)
  - Anaemia [Recovering/Resolving]
